FAERS Safety Report 23617599 (Version 1)
Quarter: 2024Q1

REPORT INFORMATION
  Report Type: Spontaneous
  Country: US (occurrence: US)
  Receive Date: 20240311
  Receipt Date: 20240311
  Transmission Date: 20240409
  Serious: No
  Sender: FDA-Public Use
  Company Number: US-SA-SAC20240304001051

PATIENT
  Age: 24 Year
  Sex: Male

DRUGS (4)
  1. ALPROLIX [Suspect]
     Active Substance: EFTRENONACOG ALFA
     Indication: Factor IX deficiency
     Dosage: 4000 U, QW (INFUSE 4000 UNITS (3600-4400) SLOW IV PUSH WEEKLY AND DAILY AS NEEDED FOR BLEEDING)
     Route: 042
     Dates: start: 20240214
  2. ALPROLIX [Suspect]
     Active Substance: EFTRENONACOG ALFA
     Indication: Factor IX deficiency
     Dosage: 4000 U, QW (INFUSE 4000 UNITS (3600-4400) SLOW IV PUSH WEEKLY AND DAILY AS NEEDED FOR BLEEDING)
     Route: 042
     Dates: start: 20240214
  3. ALPROLIX [Suspect]
     Active Substance: EFTRENONACOG ALFA
     Dosage: 4000 U, PRN (INFUSE 4000 UNITS (3600-4400) SLOW IV PUSH WEEKLY AND DAILY AS NEEDED FOR BLEEDING)
     Route: 042
     Dates: start: 20240214
  4. ALPROLIX [Suspect]
     Active Substance: EFTRENONACOG ALFA
     Dosage: 4000 U, PRN (INFUSE 4000 UNITS (3600-4400) SLOW IV PUSH WEEKLY AND DAILY AS NEEDED FOR BLEEDING)
     Route: 042
     Dates: start: 20240214

REACTIONS (1)
  - Haemorrhage [Recovered/Resolved]

NARRATIVE: CASE EVENT DATE: 20240101
